FAERS Safety Report 7983347-1 (Version None)
Quarter: 2011Q4

REPORT INFORMATION
  Report Type: 
  Country: None (occurrence: None)
  Receive Date: 20111215
  Receipt Date: 20111202
  Transmission Date: 20120403
  Serious: Yes (Other)
  Sender: FDA-Public Use
  Company Number: JP-MYLANLABS-2011S1025271

PATIENT
  Age: 8 Year

DRUGS (6)
  1. IFOSFAMIDE [Suspect]
     Dosage: REDUCED DOSE
     Route: 065
  2. CISPLATIN [Suspect]
     Indication: MEDULLOBLASTOMA
     Dosage: FULL DOSE
     Route: 065
  3. IFOSFAMIDE [Suspect]
     Indication: MEDULLOBLASTOMA
     Dosage: FULL DOSE
     Route: 065
  4. CISPLATIN [Suspect]
     Dosage: REDUCED DOSE
     Route: 065
  5. ETOPOSIDE [Suspect]
     Dosage: REDUCED DOSE
     Route: 065
  6. ETOPOSIDE [Suspect]
     Indication: MEDULLOBLASTOMA
     Dosage: FULL DOSE
     Route: 065

REACTIONS (1)
  - HEARING IMPAIRED [None]
